FAERS Safety Report 4630881-8 (Version None)
Quarter: 2005Q2

REPORT INFORMATION
  Report Type: 
  Country: None (occurrence: None)
  Receive Date: 20050404
  Receipt Date: 20050404
  Transmission Date: 20051028
  Serious: Yes (Hospitalization)
  Sender: FDA-Public Use
  Company Number: None

PATIENT
  Sex: Male
  Weight: 72.1219 kg

DRUGS (4)
  1. GEMCITABINE (LILLY MANUFACTURER) [Suspect]
     Indication: PANCREATIC CARCINOMA
     Dosage: 1000 MG/M2 (042) WEEKLY
     Dates: start: 20050105
  2. GEMCITABINE (LILLY MANUFACTURER) [Suspect]
     Indication: PANCREATIC CARCINOMA
     Dosage: 1000 MG/M2 (042) WEEKLY
     Dates: start: 20050119
  3. GEMCITABINE (LILLY MANUFACTURER) [Suspect]
     Indication: PANCREATIC CARCINOMA
     Dosage: 1000 MG/M2 (042) WEEKLY
     Dates: start: 20050126
  4. LASIX [Suspect]
     Indication: OEDEMA PERIPHERAL
     Dosage: 40 MG (047) QD
     Dates: start: 20050124, end: 20050128

REACTIONS (15)
  - CARDIAC FAILURE CONGESTIVE [None]
  - ESCHERICHIA INFECTION [None]
  - GENERALISED OEDEMA [None]
  - HYPOALBUMINAEMIA [None]
  - HYPOKALAEMIA [None]
  - HYPOTENSION [None]
  - HYPOVOLAEMIA [None]
  - MALNUTRITION [None]
  - MYOCARDIAL INFARCTION [None]
  - PANCYTOPENIA [None]
  - PULMONARY OEDEMA [None]
  - RENAL FAILURE ACUTE [None]
  - SEPSIS SYNDROME [None]
  - URINARY TRACT INFECTION [None]
  - UROSEPSIS [None]
